FAERS Safety Report 24548601 (Version 1)
Quarter: 2024Q4

REPORT INFORMATION
  Report Type: Spontaneous
  Country: CN (occurrence: CN)
  Receive Date: 20241025
  Receipt Date: 20241025
  Transmission Date: 20250115
  Serious: Yes (Hospitalization)
  Sender: JIANGSU HANSOH PHARMACEUTICAL
  Company Number: CN-Jiangsu Hansoh Pharmaceutical Co., Ltd-2163800

PATIENT
  Age: 68 Year
  Sex: Female

DRUGS (3)
  1. AZACITIDINE [Suspect]
     Active Substance: AZACITIDINE
     Indication: Acute myeloid leukaemia
     Dates: start: 20240916, end: 20240922
  2. CYTARABINE [Suspect]
     Active Substance: CYTARABINE
     Dates: start: 20240916, end: 20240922
  3. VENETOCLAX [Suspect]
     Active Substance: VENETOCLAX
     Dates: start: 20240916, end: 20240916

REACTIONS (8)
  - Dysphagia [Recovering/Resolving]
  - Abdominal discomfort [Unknown]
  - Dyspepsia [Unknown]
  - Abdominal distension [Unknown]
  - Gastrooesophageal reflux disease [Unknown]
  - Diarrhoea [Recovering/Resolving]
  - Vomiting [Recovering/Resolving]
  - Nausea [Recovering/Resolving]

NARRATIVE: CASE EVENT DATE: 20240916
